FAERS Safety Report 21442757 (Version 1)
Quarter: 2022Q4

REPORT INFORMATION
  Report Type: Report from Study
  Country: US (occurrence: US)
  Receive Date: 20221012
  Receipt Date: 20221012
  Transmission Date: 20230113
  Serious: No
  Sender: FDA-Public Use
  Company Number: US-ABBVIE-4147835

PATIENT
  Sex: Female

DRUGS (5)
  1. SKYRIZI [Suspect]
     Active Substance: RISANKIZUMAB-RZAA
     Indication: Psoriasis
     Route: 058
  2. SKYRIZI [Suspect]
     Active Substance: RISANKIZUMAB-RZAA
     Indication: Psoriatic arthropathy
  3. Pfizer/BioNTech [Concomitant]
     Indication: COVID-19 immunisation
     Dosage: COVID VACCINE FIRST DOSE, 1 IN 1 DAY
     Route: 030
     Dates: start: 20210301, end: 20210301
  4. Pfizer/BioNTech [Concomitant]
     Indication: COVID-19 immunisation
     Dosage: COVID VACCINE SECOND DOSE, 1 IN 1 DAY
     Route: 030
     Dates: start: 20210401, end: 20210401
  5. Pfizer/BioNTech [Concomitant]
     Indication: COVID-19 immunisation
     Dosage: BOOSTER COVID VACCINE THIRD DOSE, 1 IN 1 DAY
     Route: 030
     Dates: start: 20211101, end: 20211101

REACTIONS (1)
  - Therapeutic product effect incomplete [Unknown]
